FAERS Safety Report 5268724-4 (Version None)
Quarter: 2007Q1

REPORT INFORMATION
  Report Type: 
  Country: None (occurrence: None)
  Receive Date: 20061213
  Receipt Date: 20031111
  Transmission Date: 20070707
  Serious: Yes (Death, Hospitalization)
  Sender: FDA-Public Use
  Company Number: 2003UW13256

PATIENT
  Age: 73 Year
  Sex: Female
  Weight: 55.5656 kg

DRUGS (10)
  1. IRESSA [Suspect]
     Indication: NON-SMALL CELL LUNG CANCER
     Dosage: 250 MG QD PO
     Route: 048
     Dates: start: 20030909, end: 20031001
  2. PERCOCET [Concomitant]
  3. TYLENOL [Concomitant]
  4. PROCRIT [Concomitant]
  5. PREDNISONE [Concomitant]
  6. TOPROL-XL [Concomitant]
  7. ANZEMET [Concomitant]
  8. DECADRON [Concomitant]
  9. BENADRYL [Concomitant]
  10. ZANTAC [Concomitant]

REACTIONS (1)
  - INTERSTITIAL LUNG DISEASE [None]
